FAERS Safety Report 8580809 (Version 2)
Quarter: 2013Q2

REPORT INFORMATION
  Report Type: Spontaneous
  Country: US (occurrence: US)
  Receive Date: 20120525
  Receipt Date: 20130516
  Transmission Date: 20140414
  Serious: Yes (Hospitalization, Disabling)
  Sender: FDA-Public Use
  Company Number: US-BAYER-2012-051040

PATIENT
  Age: 40 Year
  Sex: Female

DRUGS (1)
  1. BEYAZ [Suspect]
     Indication: ENDOMETRIOSIS
     Dosage: UNK
     Dates: start: 20110313, end: 20110412

REACTIONS (11)
  - Deep vein thrombosis [None]
  - Pulmonary embolism [None]
  - Thrombosis [None]
  - Injury [None]
  - Pain [None]
  - Pain in extremity [None]
  - Muscle spasms [None]
  - Muscle tightness [None]
  - Local swelling [None]
  - Emotional distress [None]
  - Anxiety [None]
